FAERS Safety Report 21147329 (Version 2)
Quarter: 2022Q3

REPORT INFORMATION
  Report Type: Spontaneous
  Country: US (occurrence: US)
  Receive Date: 20220729
  Receipt Date: 20220818
  Transmission Date: 20221027
  Serious: No
  Sender: FDA-Public Use
  Company Number: US-KYOWAKIRIN-2022BKK011677

PATIENT

DRUGS (1)
  1. POTELIGEO [Suspect]
     Active Substance: MOGAMULIZUMAB-KPKC
     Indication: Product used for unknown indication
     Dosage: 20 MG/5 ML, EVERY 12 WEEKS FOR TWO YEARS
     Route: 065

REACTIONS (4)
  - Lymphadenopathy [Unknown]
  - Psoriasis [Unknown]
  - Rash [Unknown]
  - Inappropriate schedule of product administration [Unknown]
